FAERS Safety Report 25157957 (Version 5)
Quarter: 2025Q3

REPORT INFORMATION
  Report Type: Report from Study
  Country: US (occurrence: US)
  Receive Date: 20250404
  Receipt Date: 20250716
  Transmission Date: 20251020
  Serious: Yes (Hospitalization, Other)
  Sender: SUNOVION
  Company Number: US-SUMITOMO PHARMA SWITZERLAND GMBH-2025SPA003587

PATIENT

DRUGS (2)
  1. ORGOVYX [Suspect]
     Active Substance: RELUGOLIX
     Indication: Prostate cancer
     Route: 048
  2. ORGOVYX [Suspect]
     Active Substance: RELUGOLIX
     Dosage: 120 MG, QD
     Route: 048
     Dates: start: 20250314

REACTIONS (13)
  - Neoplasm malignant [Unknown]
  - Vomiting [Unknown]
  - Illness [Unknown]
  - Polyuria [Unknown]
  - Bone marrow failure [Unknown]
  - Leukaemia [Unknown]
  - Constipation [Unknown]
  - Fatigue [Unknown]
  - Neoplasm [Unknown]
  - Malaise [Unknown]
  - Asthenia [Unknown]
  - Therapy interrupted [Unknown]
  - Inappropriate schedule of product administration [Unknown]

NARRATIVE: CASE EVENT DATE: 20250404
